FAERS Safety Report 22964534 (Version 3)
Quarter: 2024Q2

REPORT INFORMATION
  Report Type: Report from Study
  Country: CA (occurrence: CA)
  Receive Date: 20230921
  Receipt Date: 20240425
  Transmission Date: 20240716
  Serious: Yes (Other)
  Sender: FDA-Public Use
  Company Number: CA-JNJFOC-20230936934

PATIENT
  Age: 49 Year
  Sex: Female
  Weight: 115 kg

DRUGS (2)
  1. REMICADE [Suspect]
     Active Substance: INFLIXIMAB
     Indication: Pyoderma gangrenosum
     Route: 041
     Dates: start: 20190603
  2. REMICADE [Suspect]
     Active Substance: INFLIXIMAB
     Route: 041
     Dates: start: 20190603

REACTIONS (5)
  - Pyoderma gangrenosum [Recovered/Resolved]
  - Product dose omission issue [Unknown]
  - Nasopharyngitis [Recovering/Resolving]
  - Vascular calcification [Unknown]
  - Cough [Unknown]

NARRATIVE: CASE EVENT DATE: 20230705
